FAERS Safety Report 6314843-0 (Version None)
Quarter: 2009Q3

REPORT INFORMATION
  Report Type: 
  Country: None (occurrence: None)
  Receive Date: 20090819
  Receipt Date: 20090806
  Transmission Date: 20100115
  Serious: Yes (Hospitalization, Other)
  Sender: FDA-Public Use
  Company Number: US-PFIZER INC-2009234819

PATIENT
  Sex: Male
  Weight: 81.633 kg

DRUGS (3)
  1. LYRICA [Suspect]
     Indication: NEUROPATHY PERIPHERAL
     Dosage: 75 MG, 2X/DAY
     Dates: start: 20090101
  2. LYRICA [Suspect]
     Indication: CHEST PAIN
  3. LEXAPRO [Concomitant]
     Dosage: UNK

REACTIONS (8)
  - DISTURBANCE IN ATTENTION [None]
  - DRY MOUTH [None]
  - ECZEMA [None]
  - HIP SURGERY [None]
  - OEDEMA PERIPHERAL [None]
  - PRURITUS [None]
  - RASH [None]
  - WEIGHT INCREASED [None]
